FAERS Safety Report 7800747-0 (Version None)
Quarter: 2011Q4

REPORT INFORMATION
  Report Type: 
  Country: None (occurrence: None)
  Receive Date: 20111006
  Receipt Date: 20111003
  Transmission Date: 20120403
  Serious: Yes (Hospitalization)
  Sender: FDA-Public Use
  Company Number: US-AMGEN-USASP2011040442

PATIENT
  Age: 60 Year
  Sex: Female

DRUGS (19)
  1. ENBREL [Suspect]
     Dosage: 50 MG, QWK
     Dates: start: 19980901
  2. CLOTRIMAZOLE [Concomitant]
     Dosage: 10 MG, Q8H
     Dates: start: 20110609, end: 20110902
  3. CYMBALTA [Concomitant]
     Dosage: 60 MG, QD
     Route: 048
     Dates: start: 20110801, end: 20110902
  4. WARFARIN SODIUM [Concomitant]
     Dosage: 6 MG, QD
     Dates: start: 20110502, end: 20110913
  5. IRON [Concomitant]
     Dosage: UNK UNK, Q12H
     Dates: start: 20110628, end: 20110902
  6. ROPINIROLE HYDROCHLORIDE [Concomitant]
     Dosage: 0.5 MG, QHS
     Dates: start: 20110622, end: 20110902
  7. PRAMIPEXOLE HYDROCHLORIDE [Concomitant]
     Dosage: 0.5 MG, QHS
     Dates: start: 20110613, end: 20110923
  8. LEVOTHYROXINE SODIUM [Concomitant]
     Dosage: 98 MUG, Q12H
     Dates: start: 20110620, end: 20110902
  9. VESICARE [Concomitant]
     Dosage: 10 MG, QD
     Dates: start: 20110617, end: 20110902
  10. METOPROLOL TARTRATE [Concomitant]
     Dosage: 100 MG, UNK
     Dates: end: 20110902
  11. ASPIRIN [Concomitant]
     Dosage: 81 MG, QD
     Route: 048
     Dates: end: 20110902
  12. DULCOLAX [Concomitant]
     Dosage: UNK UNK, PRN
  13. ENBREL [Suspect]
     Indication: PSORIATIC ARTHROPATHY
     Dosage: 50 MG, QWK
     Dates: start: 20101228, end: 20110902
  14. ABILIFY [Concomitant]
     Dosage: 5 MG, QD
     Route: 048
     Dates: start: 20110902
  15. BUMETANIDE [Concomitant]
     Dosage: 1 MG, Q12H
     Dates: start: 20101213, end: 20110902
  16. BETAMETHASONE VALERATE [Concomitant]
     Dosage: 0.1 UNK, Q12H
     Route: 061
     Dates: start: 20110816
  17. COUMADIN [Concomitant]
     Dosage: 1 MG, UNK
     Dates: start: 20110801, end: 20110902
  18. FOLIC ACID [Concomitant]
     Dosage: 1 MG, QD
     Dates: start: 20110718, end: 20110902
  19. VICODIN ES [Concomitant]
     Dosage: 1 UNK, Q4H
     Dates: end: 20110902

REACTIONS (7)
  - PSORIATIC ARTHROPATHY [None]
  - DYSPNOEA [None]
  - INTERVERTEBRAL DISC DEGENERATION [None]
  - ARTHRALGIA [None]
  - MYOCARDIAL INFARCTION [None]
  - ARTHRITIS [None]
  - MOBILITY DECREASED [None]
